FAERS Safety Report 10037622 (Version 1)
Quarter: 2014Q1

REPORT INFORMATION
  Report Type: Spontaneous
  Country: US (occurrence: None)
  Receive Date: 20140325
  Receipt Date: 20140325
  Transmission Date: 20141002
  Serious: Yes (Hospitalization)
  Sender: FDA-Public Use
  Company Number: None

PATIENT
  Age: 50 Year
  Sex: Male
  Weight: 99.79 kg

DRUGS (7)
  1. LORCASERIN HYDROCHLORIDE [Suspect]
     Dosage: 1 TABLET BID, ORAL?^RECENTLY STARTED^
     Route: 048
  2. LISINOPRIL [Concomitant]
  3. LITHIUM [Concomitant]
  4. METFORMIN [Concomitant]
  5. SPIRIVA [Concomitant]
  6. TOPAMAX [Concomitant]
  7. TRAZODONE [Concomitant]

REACTIONS (11)
  - Drug interaction [None]
  - Renal failure acute [None]
  - Toxicity to various agents [None]
  - Mental status changes [None]
  - Abnormal behaviour [None]
  - Hallucination [None]
  - Dehydration [None]
  - Tremor [None]
  - Hyperreflexia [None]
  - Diarrhoea [None]
  - Vomiting [None]
